FAERS Safety Report 5472422-1 (Version None)
Quarter: 2007Q3

REPORT INFORMATION
  Report Type: 
  Country: None (occurrence: None)
  Receive Date: 20070927
  Receipt Date: 20070912
  Transmission Date: 20080115
  Serious: Yes (Hospitalization)
  Sender: FDA-Public Use
  Company Number: 2007001696

PATIENT
  Age: 58 Year
  Sex: Female
  Weight: 59 kg

DRUGS (2)
  1. ERLOTINIB (TABLET) [Suspect]
     Indication: LEIOMYOSARCOMA
     Dosage: 150 MG (Q3W), ORAL
     Route: 048
     Dates: start: 20070808
  2. TOPOTECAN (TOPOTECAN) [Suspect]
     Indication: COLON CANCER METASTATIC
     Dosage: 1.6 MG, INTRAVENOUS
     Route: 042
     Dates: start: 20070808

REACTIONS (4)
  - FEEDING TUBE COMPLICATION [None]
  - HYPOTENSION [None]
  - NEUTROPENIA [None]
  - THROMBOCYTOPENIA [None]
